FAERS Safety Report 4859080-1 (Version None)
Quarter: 2005Q4

REPORT INFORMATION
  Report Type: 
  Country: None (occurrence: None)
  Receive Date: 20051219
  Receipt Date: 20050913
  Transmission Date: 20060501
  Serious: No
  Sender: FDA-Public Use
  Company Number: US-GLAXOSMITHKLINE-A0574021A

PATIENT
  Age: 48 Year
  Sex: Female
  Weight: 59 kg

DRUGS (1)
  1. NICODERM CQ [Suspect]

REACTIONS (5)
  - ANXIETY [None]
  - CHEST DISCOMFORT [None]
  - CHEST PAIN [None]
  - EXTRASYSTOLES [None]
  - PALPITATIONS [None]
